FAERS Safety Report 24956844 (Version 1)
Quarter: 2025Q1

REPORT INFORMATION
  Report Type: Spontaneous
  Country: US (occurrence: US)
  Receive Date: 20250211
  Receipt Date: 20250211
  Transmission Date: 20250408
  Serious: No
  Sender: PURDUE
  Company Number: US-PURDUE-USA-2025-0315415

PATIENT

DRUGS (1)
  1. HYDROCODONE BITARTRATE [Suspect]
     Active Substance: HYDROCODONE BITARTRATE
     Indication: Product used for unknown indication
     Route: 048

REACTIONS (3)
  - Therapeutic response changed [Unknown]
  - Drug withdrawal syndrome [Not Recovered/Not Resolved]
  - Product substitution issue [Unknown]
